FAERS Safety Report 7967564-2 (Version None)
Quarter: 2011Q4

REPORT INFORMATION
  Report Type: 
  Country: None (occurrence: None)
  Receive Date: 20111209
  Receipt Date: 20111205
  Transmission Date: 20120403
  Serious: Yes (Hospitalization)
  Sender: FDA-Public Use
  Company Number: PL-AMGEN-POLCT2011062327

PATIENT
  Age: 65 Year
  Sex: Male

DRUGS (3)
  1. DENOSUMAB [Suspect]
     Indication: METASTASES TO BONE
     Dosage: 1.7 ML, Q4WK
     Route: 058
     Dates: start: 20110304
  2. VITAMIN D [Concomitant]
     Dosage: 625 MG, UNK
     Route: 048
     Dates: start: 20070308
  3. CALCIUM [Concomitant]
     Dosage: 200 MG, UNK
     Route: 048
     Dates: start: 20070308

REACTIONS (1)
  - OSTEONECROSIS OF JAW [None]
